FAERS Safety Report 10805679 (Version 1)
Quarter: 2015Q1

REPORT INFORMATION
  Report Type: Spontaneous
  Country: None (occurrence: US)
  Receive Date: 20150217
  Receipt Date: 20150217
  Transmission Date: 20150721
  Serious: Yes (Other)
  Sender: FDA-Public Use
  Company Number: US-CELGENE-163-21660-11060909

PATIENT

DRUGS (2)
  1. BEVACIZUMAB [Suspect]
     Active Substance: BEVACIZUMAB
     Indication: METASTATIC MALIGNANT MELANOMA
     Dosage: 10 MILLIGRAM/KILOGRAM
     Route: 041
  2. ABRAXANE [Suspect]
     Active Substance: PACLITAXEL
     Indication: METASTATIC MALIGNANT MELANOMA
     Dosage: 150 MILLIGRAM/SQ. METER
     Route: 041

REACTIONS (36)
  - Nephrotic syndrome [Unknown]
  - Atrial flutter [Unknown]
  - Eating disorder [Unknown]
  - Mucous membrane disorder [Unknown]
  - Malignant melanoma [Unknown]
  - Intestinal perforation [Unknown]
  - Fatigue [Unknown]
  - Nail disorder [Unknown]
  - Macular oedema [Unknown]
  - Pulmonary embolism [Unknown]
  - Headache [Unknown]
  - Pain [Unknown]
  - Transient ischaemic attack [Unknown]
  - Dyspnoea [Unknown]
  - Proteinuria [Unknown]
  - Nausea [Unknown]
  - Epistaxis [Unknown]
  - Rash [Unknown]
  - Visual acuity reduced [Unknown]
  - Small intestinal perforation [Unknown]
  - Haemoptysis [Unknown]
  - Renal tubular necrosis [Unknown]
  - Supraventricular tachycardia [Unknown]
  - Neutropenia [Unknown]
  - Lacrimation increased [Unknown]
  - Neuropathy peripheral [Unknown]
  - Palmar-plantar erythrodysaesthesia syndrome [Unknown]
  - Alopecia [Unknown]
  - Diarrhoea [Unknown]
  - Dysgeusia [Unknown]
  - Decreased appetite [Unknown]
  - Constipation [Unknown]
  - Cough [Unknown]
  - Stomatitis [Unknown]
  - Mucosal inflammation [Unknown]
  - Hypertension [Unknown]
